FAERS Safety Report 12426630 (Version 2)
Quarter: 2016Q3

REPORT INFORMATION
  Report Type: Spontaneous
  Country: US (occurrence: US)
  Receive Date: 20160601
  Receipt Date: 20160816
  Transmission Date: 20161109
  Serious: Yes (Hospitalization)
  Sender: FDA-Public Use
  Company Number: US-CELGENEUS-USA-2016056212

PATIENT
  Age: 60 Year
  Sex: Male

DRUGS (7)
  1. THALOMID [Suspect]
     Active Substance: THALIDOMIDE
     Indication: GASTROINTESTINAL HAEMORRHAGE
     Route: 048
     Dates: start: 20160422
  2. COUMADIN [Concomitant]
     Active Substance: WARFARIN SODIUM
     Indication: VENTRICULAR ASSIST DEVICE INSERTION
     Dosage: 8.5 MILLIGRAM
     Route: 048
     Dates: start: 201602
  3. IRON [Concomitant]
     Active Substance: IRON
     Indication: VENTRICULAR ASSIST DEVICE INSERTION
  4. THALOMID [Suspect]
     Active Substance: THALIDOMIDE
     Dosage: 650 MILLIGRAM
     Route: 048
     Dates: start: 201606
  5. ASPIRIN. [Concomitant]
     Active Substance: ASPIRIN
     Indication: VENTRICULAR ASSIST DEVICE INSERTION
     Dosage: 81 MILLIGRAM
     Route: 048
     Dates: start: 201602
  6. IRON [Concomitant]
     Active Substance: IRON
     Indication: GASTROINTESTINAL HAEMORRHAGE
     Route: 048
     Dates: start: 201602
  7. PROTONIX [Concomitant]
     Active Substance: PANTOPRAZOLE SODIUM
     Indication: GASTROINTESTINAL HAEMORRHAGE
     Dosage: 80 MILLIGRAM
     Route: 048
     Dates: start: 201602

REACTIONS (1)
  - Gastrointestinal haemorrhage [Recovered/Resolved]

NARRATIVE: CASE EVENT DATE: 20160517
